FAERS Safety Report 25835971 (Version 1)
Quarter: 2025Q3

REPORT INFORMATION
  Report Type: Spontaneous
  Country: IN (occurrence: IN)
  Receive Date: 20250923
  Receipt Date: 20250923
  Transmission Date: 20251020
  Serious: Yes (Other)
  Sender: MYLAN
  Company Number: IN-MYLANLABS-2025M1080127

PATIENT
  Age: 68 Year
  Sex: Male

DRUGS (16)
  1. TICAGRELOR [Suspect]
     Active Substance: TICAGRELOR
     Indication: Acute coronary syndrome
  2. TICAGRELOR [Suspect]
     Active Substance: TICAGRELOR
     Route: 048
  3. TICAGRELOR [Suspect]
     Active Substance: TICAGRELOR
     Route: 048
  4. TICAGRELOR [Suspect]
     Active Substance: TICAGRELOR
  5. ASPIRIN [Concomitant]
     Active Substance: ASPIRIN
     Indication: Acute coronary syndrome
  6. ASPIRIN [Concomitant]
     Active Substance: ASPIRIN
     Route: 048
  7. ASPIRIN [Concomitant]
     Active Substance: ASPIRIN
     Route: 048
  8. ASPIRIN [Concomitant]
     Active Substance: ASPIRIN
  9. ATORVASTATIN [Concomitant]
     Active Substance: ATORVASTATIN
     Indication: Acute coronary syndrome
  10. ATORVASTATIN [Concomitant]
     Active Substance: ATORVASTATIN
     Route: 048
  11. ATORVASTATIN [Concomitant]
     Active Substance: ATORVASTATIN
     Route: 048
  12. ATORVASTATIN [Concomitant]
     Active Substance: ATORVASTATIN
  13. FONDAPARINUX [Concomitant]
     Active Substance: FONDAPARINUX
     Indication: Acute coronary syndrome
  14. FONDAPARINUX [Concomitant]
     Active Substance: FONDAPARINUX
     Route: 058
  15. FONDAPARINUX [Concomitant]
     Active Substance: FONDAPARINUX
     Route: 058
  16. FONDAPARINUX [Concomitant]
     Active Substance: FONDAPARINUX

REACTIONS (1)
  - Thrombocytopenia [Recovered/Resolved]
